FAERS Safety Report 4933724-8 (Version None)
Quarter: 2006Q1

REPORT INFORMATION
  Report Type: 
  Country: None (occurrence: None)
  Receive Date: 20060306
  Receipt Date: 20060224
  Transmission Date: 20060701
  Serious: Yes (Hospitalization)
  Sender: FDA-Public Use
  Company Number: FR-ABBOTT-06P-056-0326095-00

PATIENT
  Age: 43 Year
  Sex: Male

DRUGS (4)
  1. DEPAKOTE [Suspect]
     Indication: BIPOLAR I DISORDER
     Route: 048
     Dates: start: 20051109, end: 20051230
  2. OLANZAPINE [Suspect]
     Indication: BIPOLAR I DISORDER
     Route: 048
     Dates: start: 20051212, end: 20051230
  3. THIAMINE HCL [Concomitant]
     Indication: VITAMIN B1 DEFICIENCY
     Route: 048
     Dates: start: 20051109
  4. SPIRONOLACTONE [Concomitant]
     Indication: OEDEMA
     Route: 048
     Dates: start: 20051213, end: 20051226

REACTIONS (4)
  - CONFUSIONAL STATE [None]
  - HYPERAMMONAEMIA [None]
  - MEMORY IMPAIRMENT [None]
  - PROTHROMBIN TIME SHORTENED [None]
